FAERS Safety Report 6682771-7 (Version None)
Quarter: 2010Q2

REPORT INFORMATION
  Report Type: 
  Country: None (occurrence: None)
  Receive Date: 20100415
  Receipt Date: 20100407
  Transmission Date: 20101027
  Serious: Yes (Other)
  Sender: FDA-Public Use
  Company Number: CA-BAXTER-2010BH007267

PATIENT
  Age: 48 Year
  Sex: Male
  Weight: 72 kg

DRUGS (44)
  1. GAMMAGARD LIQUID [Suspect]
     Indication: T-CELL LYMPHOMA
     Route: 042
     Dates: start: 20100219, end: 20100219
  2. GAMMAGARD LIQUID [Suspect]
     Indication: CHRONIC INFLAMMATORY DEMYELINATING POLYRADICULONEUROPATHY
     Route: 042
     Dates: start: 20100219, end: 20100219
  3. GAMMAGARD LIQUID [Suspect]
     Indication: OFF LABEL USE
     Route: 042
     Dates: start: 20100219, end: 20100219
  4. GAMMAGARD LIQUID [Suspect]
     Route: 042
     Dates: start: 20100219, end: 20100219
  5. GAMMAGARD LIQUID [Suspect]
     Route: 042
     Dates: start: 20100219, end: 20100219
  6. GAMMAGARD LIQUID [Suspect]
     Route: 042
     Dates: start: 20100219, end: 20100219
  7. GAMMAGARD LIQUID [Suspect]
     Route: 042
     Dates: start: 20100220, end: 20100220
  8. GAMMAGARD LIQUID [Suspect]
     Route: 042
     Dates: start: 20100220, end: 20100220
  9. GAMMAGARD LIQUID [Suspect]
     Route: 042
     Dates: start: 20100220, end: 20100220
  10. GAMMAGARD LIQUID [Suspect]
     Route: 042
     Dates: start: 20100219, end: 20100219
  11. GAMMAGARD LIQUID [Suspect]
     Route: 042
     Dates: start: 20100219, end: 20100219
  12. GAMMAGARD LIQUID [Suspect]
     Route: 042
     Dates: start: 20100219, end: 20100219
  13. GAMMAGARD LIQUID [Suspect]
     Route: 042
     Dates: start: 20100220, end: 20100220
  14. GAMMAGARD LIQUID [Suspect]
     Route: 042
     Dates: start: 20100220, end: 20100220
  15. GAMMAGARD LIQUID [Suspect]
     Route: 042
     Dates: start: 20100220, end: 20100220
  16. GAMMAGARD LIQUID [Suspect]
     Route: 042
     Dates: start: 20100220, end: 20100220
  17. GAMMAGARD LIQUID [Suspect]
     Route: 042
     Dates: start: 20100220, end: 20100220
  18. GAMMAGARD LIQUID [Suspect]
     Route: 042
     Dates: start: 20100220, end: 20100220
  19. GAMMAGARD LIQUID [Suspect]
     Route: 042
     Dates: start: 20100220, end: 20100220
  20. GAMMAGARD LIQUID [Suspect]
     Route: 042
     Dates: start: 20100220, end: 20100220
  21. GAMMAGARD LIQUID [Suspect]
     Route: 042
     Dates: start: 20100220, end: 20100220
  22. GAMMAGARD LIQUID [Suspect]
     Route: 042
     Dates: start: 20100221, end: 20100221
  23. GAMMAGARD LIQUID [Suspect]
     Route: 042
     Dates: start: 20100221, end: 20100221
  24. GAMMAGARD LIQUID [Suspect]
     Route: 042
     Dates: start: 20100221, end: 20100221
  25. GAMMAGARD LIQUID [Suspect]
     Route: 042
     Dates: start: 20100221, end: 20100221
  26. GAMMAGARD LIQUID [Suspect]
     Route: 042
     Dates: start: 20100221, end: 20100221
  27. GAMMAGARD LIQUID [Suspect]
     Route: 042
     Dates: start: 20100221, end: 20100221
  28. GAMMAGARD LIQUID [Suspect]
     Route: 042
     Dates: start: 20100221, end: 20100221
  29. GAMMAGARD LIQUID [Suspect]
     Route: 042
     Dates: start: 20100221, end: 20100221
  30. GAMMAGARD LIQUID [Suspect]
     Route: 042
     Dates: start: 20100221, end: 20100221
  31. GAMMAGARD LIQUID [Suspect]
     Route: 042
     Dates: start: 20100222, end: 20100222
  32. GAMMAGARD LIQUID [Suspect]
     Route: 042
     Dates: start: 20100222, end: 20100222
  33. GAMMAGARD LIQUID [Suspect]
     Route: 042
     Dates: start: 20100222, end: 20100222
  34. GAMMAGARD LIQUID [Suspect]
     Route: 042
     Dates: start: 20100222, end: 20100222
  35. GAMMAGARD LIQUID [Suspect]
     Route: 042
     Dates: start: 20100222, end: 20100222
  36. GAMMAGARD LIQUID [Suspect]
     Route: 042
     Dates: start: 20100222, end: 20100222
  37. GAMMAGARD LIQUID [Suspect]
     Route: 042
     Dates: start: 20100222, end: 20100222
  38. GAMMAGARD LIQUID [Suspect]
     Route: 042
     Dates: start: 20100222, end: 20100222
  39. GAMMAGARD LIQUID [Suspect]
     Route: 042
     Dates: start: 20100222, end: 20100222
  40. GABAPENTIN [Suspect]
     Indication: NEURALGIA
     Dates: start: 20100228
  41. PIPERACILLIN AND TAZOBACTAM [Suspect]
     Indication: PYREXIA
     Route: 042
     Dates: start: 20100228, end: 20100306
  42. DALTEPARIN SODIUM [Concomitant]
     Indication: THROMBOSIS PROPHYLAXIS
     Route: 058
     Dates: start: 20100218
  43. PROPOFOL [Concomitant]
     Indication: SEDATION
     Route: 042
     Dates: start: 20100228, end: 20100313
  44. COLACE [Concomitant]
     Dates: start: 20100217

REACTIONS (2)
  - ANAEMIA [None]
  - HAEMOLYTIC TRANSFUSION REACTION [None]
